FAERS Safety Report 10345878 (Version 2)
Quarter: 2014Q4

REPORT INFORMATION
  Report Type: Other
  Country: CN (occurrence: CN)
  Receive Date: 20140728
  Receipt Date: 20141001
  Transmission Date: 20150528
  Serious: Yes (Other)
  Sender: FDA-Public Use
  Company Number: CN-BRISTOL-MYERS SQUIBB COMPANY-21235973

PATIENT
  Age: 39 Year
  Sex: Female

DRUGS (8)
  1. IRINOTECAN [Suspect]
     Active Substance: IRINOTECAN
     Indication: COLORECTAL CANCER METASTATIC
     Dosage: FOLFIRI ON DAY 1
     Route: 041
     Dates: start: 20130106, end: 201305
  2. LEUCOVORIN CALCIUM. [Suspect]
     Active Substance: LEUCOVORIN CALCIUM
     Indication: COLORECTAL CANCER METASTATIC
     Dosage: FOLFORI UPDTD ON MAIN SCREN.FOLFOX6(500MG,ON DAY1)IVDRIP(19AUG13-SEP13).MFOLFOX6 IV(SEP13-  )
     Route: 041
     Dates: start: 20130106, end: 201305
  3. IRINOTECAN [Suspect]
     Active Substance: IRINOTECAN
     Indication: K-RAS GENE MUTATION
     Dosage: FOLFIRI ON DAY 1
     Route: 041
     Dates: start: 20130106, end: 201305
  4. OXALIPLATIN. [Suspect]
     Active Substance: OXALIPLATIN
     Indication: COLORECTAL CANCER METASTATIC
     Dosage: FOLFOX 6 (150MG) - IV DRIP (19AUG13-SEP13)?MFOLFOX 6 - IV (SEP13-ONG)
     Dates: start: 20130819
  5. CALCIUM FOLINATE [Suspect]
     Active Substance: LEUCOVORIN CALCIUM
     Indication: COLORECTAL CANCER
     Dosage: FOLFIRI (1 IN 2 WEEK) 06-JAN-2013 TO MAY-2013 INTRAVENOUS DRIP?FOLFOX 6 19-AUG-2013 TO SEP-2013
     Route: 042
  6. 5-FLUOROURACIL [Suspect]
     Active Substance: FLUOROURACIL
     Indication: COLORECTAL CANCER METASTATIC
     Dosage: FOLFORIIV PUSH ON DAY1 UPDTD ON MAIN SCRN;CONT. IV INF FOR 48H(3GM),1 IN 2WK STOPPD ON MAY13.
     Route: 042
     Dates: start: 20130106
  7. ERBITUX [Suspect]
     Active Substance: CETUXIMAB
     Indication: COLORECTAL CANCER METASTATIC
     Route: 042
     Dates: start: 20130106
  8. LENTINAN [Concomitant]
     Active Substance: LENTINAN
     Indication: COLORECTAL CANCER METASTATIC

REACTIONS (9)
  - Malignant neoplasm progression [Unknown]
  - Sinusitis [Unknown]
  - Intervertebral disc protrusion [Unknown]
  - Uterine disorder [Unknown]
  - Gastrointestinal disorder [Recovering/Resolving]
  - Hepatic steatosis [Unknown]
  - Bone marrow failure [Recovering/Resolving]
  - Dermatitis acneiform [Recovering/Resolving]
  - Rash [Recovering/Resolving]

NARRATIVE: CASE EVENT DATE: 2013
